FAERS Safety Report 20954708 (Version 1)
Quarter: 2022Q2

REPORT INFORMATION
  Report Type: Spontaneous
  Country: US (occurrence: US)
  Receive Date: 20220614
  Receipt Date: 20220614
  Transmission Date: 20220721
  Serious: No
  Sender: FDA-Public Use
  Company Number: US-BRISTOL-MYERS SQUIBB COMPANY-2022-039189

PATIENT
  Age: 78 Year
  Sex: Female
  Weight: 52.62 kg

DRUGS (1)
  1. POMALYST [Suspect]
     Active Substance: POMALIDOMIDE
     Indication: Plasma cell myeloma
     Dosage: FREQUENCY-DAILY FOR 21DAYS
     Route: 048
     Dates: start: 20210825

REACTIONS (1)
  - Drug ineffective [Unknown]
